FAERS Safety Report 7292135-3 (Version None)
Quarter: 2011Q1

REPORT INFORMATION
  Report Type: 
  Country: None (occurrence: None)
  Receive Date: 20110215
  Receipt Date: 20110201
  Transmission Date: 20110831
  Serious: No
  Sender: FDA-Public Use
  Company Number: US-BIOGENIDEC-2011BI004699

PATIENT
  Age: 46 Year
  Sex: Female

DRUGS (1)
  1. TYSABRI [Suspect]
     Indication: MULTIPLE SCLEROSIS
     Route: 042
     Dates: start: 20091215, end: 20110118

REACTIONS (4)
  - MULTIPLE SCLEROSIS [None]
  - PRIMARY PROGRESSIVE MULTIPLE SCLEROSIS [None]
  - BALANCE DISORDER [None]
  - HYPOAESTHESIA [None]
